FAERS Safety Report 10637067 (Version 1)
Quarter: 2014Q4

REPORT INFORMATION
  Report Type: Spontaneous
  Country: TR (occurrence: None)
  Receive Date: 20141204
  Receipt Date: 20141204
  Transmission Date: 20150529
  Serious: Yes (Other)
  Sender: FDA-Public Use
  Company Number: FK201405629

PATIENT
  Age: 16 Year
  Sex: Female

DRUGS (1)
  1. MANNITOL (MANUFACTURER UNKNOWN) (MANNITOL) (MANNITOL) [Suspect]
     Active Substance: MANNITOL
     Indication: BRAIN OEDEMA
     Dosage: 1 G/KG, ROU8TE NOT STATED?

REACTIONS (2)
  - Haemodialysis [None]
  - Acute kidney injury [None]
